FAERS Safety Report 12726983 (Version 1)
Quarter: 2016Q3

REPORT INFORMATION
  Report Type: Spontaneous
  Country: US (occurrence: US)
  Receive Date: 20160909
  Receipt Date: 20160909
  Transmission Date: 20161109
  Serious: No
  Sender: FDA-Public Use
  Company Number: PHHY2016US124145

PATIENT
  Age: 22 Year
  Sex: Female

DRUGS (1)
  1. CAMBIA [Suspect]
     Active Substance: DICLOFENAC POTASSIUM
     Indication: MIGRAINE
     Dosage: 50 MG, ONCE/SINGLE
     Route: 048
     Dates: start: 20160802

REACTIONS (1)
  - Retching [Unknown]

NARRATIVE: CASE EVENT DATE: 20160802
